FAERS Safety Report 9761677 (Version 5)
Quarter: 2014Q1

REPORT INFORMATION
  Report Type: Spontaneous
  Country: IT (occurrence: IT)
  Receive Date: 20131216
  Receipt Date: 20140126
  Transmission Date: 20141002
  Serious: Yes (Hospitalization)
  Sender: FDA-Public Use
  Company Number: IT-MERCK-1312ITA000170

PATIENT
  Age: 57 Year
  Sex: Female
  Weight: 55 kg

DRUGS (3)
  1. SYCREST [Suspect]
     Indication: BIPOLAR I DISORDER
     Dosage: ONCE DAILY IN THE EVENING
     Route: 060
     Dates: start: 20130301
  2. DIAZEPAM [Concomitant]
     Dosage: 20 DROPS, DAILY, IN THE EVENING
     Route: 048
  3. APROVEL [Concomitant]
     Indication: HYPERTENSION
     Dosage: 300MG, ONCE DAILY
     Route: 048

REACTIONS (3)
  - Disorientation [Recovered/Resolved]
  - Hyponatraemia [Recovered/Resolved]
  - Psychomotor hyperactivity [Recovered/Resolved]
